FAERS Safety Report 4642856-3 (Version None)
Quarter: 2005Q2

REPORT INFORMATION
  Report Type: 
  Country: None (occurrence: None)
  Receive Date: 20050421
  Receipt Date: 20050414
  Transmission Date: 20051028
  Serious: No
  Sender: FDA-Public Use
  Company Number: 2004PK01815

PATIENT
  Age: 24 Year
  Sex: Female

DRUGS (1)
  1. BELOC ZOK [Suspect]
     Indication: HYPERTENSION
     Dosage: 200 MG DAILY PO
     Route: 048
     Dates: start: 20040501

REACTIONS (2)
  - ABORTION SPONTANEOUS [None]
  - DRUG EXPOSURE DURING PREGNANCY [None]
